FAERS Safety Report 17458743 (Version 1)
Quarter: 2020Q1

REPORT INFORMATION
  Report Type: Spontaneous
  Country: US (occurrence: US)
  Receive Date: 20191001
  Receipt Date: 20191001
  Transmission Date: 20200409
  Serious: No
  Sender: FDA-Public Use
  Company Number: None

PATIENT
  Age: 17 Year
  Sex: Female

DRUGS (4)
  1. THC VAPE [Suspect]
     Active Substance: .DELTA.8-TETRAHYDROCANNABINOL\DEVICE\HERBALS
  2. BICALUTAMIDE. [Concomitant]
     Active Substance: BICALUTAMIDE
  3. DEESTROGEN [Concomitant]
  4. PROGESTERONE. [Concomitant]
     Active Substance: PROGESTERONE

REACTIONS (4)
  - Seizure [None]
  - Dizziness [None]
  - Asthenia [None]
  - Nausea [None]
